FAERS Safety Report 6311813-3 (Version None)
Quarter: 2009Q3

REPORT INFORMATION
  Report Type: 
  Country: None (occurrence: None)
  Receive Date: 20090813
  Receipt Date: 20090813
  Transmission Date: 20100115
  Serious: Yes (Other)
  Sender: FDA-Public Use
  Company Number: None

PATIENT
  Sex: Female
  Weight: 74.8435 kg

DRUGS (3)
  1. PROAIR HFA [Suspect]
     Indication: ASTHMA
     Dosage: 90 MCG INHAL 2 TO 3 X DAILY 2 PUFFS 4 TIMES DAILY
     Dates: start: 20081201, end: 20090701
  2. PROAIR HFA [Suspect]
     Indication: HYPERSENSITIVITY
     Dosage: 90 MCG INHAL 2 TO 3 X DAILY 2 PUFFS 4 TIMES DAILY
     Dates: start: 20081201, end: 20090701
  3. PROAIR HFA [Suspect]
     Indication: RESPIRATORY DISORDER
     Dosage: 90 MCG INHAL 2 TO 3 X DAILY 2 PUFFS 4 TIMES DAILY
     Dates: start: 20081201, end: 20090701

REACTIONS (4)
  - DEVICE INEFFECTIVE [None]
  - DRUG INEFFECTIVE [None]
  - MEDICAL DEVICE COMPLICATION [None]
  - PRODUCT QUALITY ISSUE [None]
